FAERS Safety Report 11267499 (Version 1)
Quarter: 2015Q3

REPORT INFORMATION
  Report Type: Spontaneous
  Country: US (occurrence: US)
  Receive Date: 20150713
  Receipt Date: 20150713
  Transmission Date: 20151125
  Serious: No
  Sender: FDA-Public Use
  Company Number: US-TAKEDA-2013MPI000448

PATIENT
  Age: 51 Year
  Sex: Male

DRUGS (4)
  1. CYTOXAN [Concomitant]
     Active Substance: CYCLOPHOSPHAMIDE
     Dosage: 550 MG, UNK
     Route: 048
     Dates: start: 20130911
  2. ZOFRAN [Concomitant]
     Active Substance: ONDANSETRON HYDROCHLORIDE
     Dosage: UNK
     Dates: start: 20130911
  3. VELCADE [Suspect]
     Active Substance: BORTEZOMIB
     Indication: PLASMA CELL MYELOMA
     Dosage: 2.7 MG, 1/WEEK
     Route: 058
     Dates: start: 20130911
  4. DECADRON [Concomitant]
     Active Substance: DEXAMETHASONE
     Dosage: 40 MG, UNK
     Route: 048
     Dates: start: 20130911

REACTIONS (1)
  - Pain in extremity [Unknown]

NARRATIVE: CASE EVENT DATE: 20130918
